FAERS Safety Report 12388428 (Version 1)
Quarter: 2016Q2

REPORT INFORMATION
  Report Type: Spontaneous
  Country: US (occurrence: None)
  Receive Date: 20160519
  Receipt Date: 20160519
  Transmission Date: 20160815
  Serious: No
  Sender: FDA-Public Use
  Company Number: None

PATIENT
  Age: 55 Year
  Weight: 77.25 kg

DRUGS (8)
  1. LANTUS [Concomitant]
     Active Substance: INSULIN GLARGINE
  2. BIOTIN [Concomitant]
     Active Substance: BIOTIN
  3. VITAMIN D [Concomitant]
     Active Substance: CHOLECALCIFEROL
  4. NOVOLOG [Concomitant]
     Active Substance: INSULIN ASPART
  5. COQ10 [Concomitant]
     Active Substance: UBIDECARENONE
  6. NORVASC [Concomitant]
     Active Substance: AMLODIPINE BESYLATE
  7. RANEXA [Suspect]
     Active Substance: RANOLAZINE
     Indication: ANGINA PECTORIS
     Route: 048
     Dates: start: 20160505, end: 20160518
  8. EFFIENT [Concomitant]
     Active Substance: PRASUGREL HYDROCHLORIDE

REACTIONS (3)
  - Upper extremity mass [None]
  - Hypoaesthesia [None]
  - Contusion [None]

NARRATIVE: CASE EVENT DATE: 20160507
